FAERS Safety Report 23319915 (Version 2)
Quarter: 2024Q3

REPORT INFORMATION
  Report Type: Spontaneous
  Country: JP (occurrence: JP)
  Receive Date: 20231220
  Receipt Date: 20240926
  Transmission Date: 20241016
  Serious: Yes (Other)
  Sender: ASTELLAS
  Company Number: JP-ASTELLAS-2023JP013945

PATIENT
  Age: 8 Decade
  Sex: Female

DRUGS (2)
  1. PROGRAF [Suspect]
     Active Substance: TACROLIMUS
     Indication: Myasthenia gravis
     Dosage: 1 MG, ONCE DAILY, AFTER DINNER
     Route: 048
  2. PROGRAF [Suspect]
     Active Substance: TACROLIMUS
     Dosage: 2 MG, ONCE DAILY, AFTER DINNER
     Route: 048

REACTIONS (2)
  - Myasthenia gravis [Unknown]
  - Underdose [Unknown]
